FAERS Safety Report 25958086 (Version 1)
Quarter: 2025Q4

REPORT INFORMATION
  Report Type: Spontaneous
  Country: US (occurrence: None)
  Receive Date: 20251023
  Receipt Date: 20251023
  Transmission Date: 20260119
  Serious: Yes (Death)
  Sender: FDA-CTU
  Company Number: None

PATIENT
  Sex: Male

DRUGS (3)
  1. ENTECAVIR [Suspect]
     Active Substance: ENTECAVIR
     Indication: Hepatitis B
     Dosage: 0.5 MG ONCE A WEEK ORAL
     Route: 048
     Dates: start: 20211011
  2. ENTECAVIR [Suspect]
     Active Substance: ENTECAVIR
     Indication: HIV infection
  3. ENTECAVIR [Suspect]
     Active Substance: ENTECAVIR
     Indication: HIV infection

REACTIONS (1)
  - Death [None]
